FAERS Safety Report 22157991 (Version 1)
Quarter: 2023Q1

REPORT INFORMATION
  Report Type: Spontaneous
  Country: US (occurrence: US)
  Receive Date: 20230330
  Receipt Date: 20230330
  Transmission Date: 20230418
  Serious: No
  Sender: FDA-Public Use
  Company Number: US-Emergent Biosolutions-23000055

PATIENT
  Age: 21 Year
  Sex: Male

DRUGS (6)
  1. CNJ-016 [Suspect]
     Active Substance: HUMAN VACCINIA VIRUS IMMUNE GLOBULIN
     Indication: Monkeypox
     Dosage: UNK
     Route: 042
  2. CIDOFOVIR [Concomitant]
     Active Substance: CIDOFOVIR
     Indication: Monkeypox
     Dosage: 5 MILLIGRAM/KILOGRAM, WEEKLY
     Route: 042
  3. TECOVIRIMAT [Concomitant]
     Active Substance: TECOVIRIMAT
     Indication: Monkeypox
     Dosage: 600 MILLIGRAM, EVERY 12 HR
     Route: 048
  4. VANCOMYCIN [Concomitant]
     Active Substance: VANCOMYCIN
     Route: 065
  5. CEFEPIME [Concomitant]
     Active Substance: CEFEPIME HYDROCHLORIDE
     Route: 065
  6. BLEOMYCIN\DACARBAZINE\DOXORUBICIN\VINBLASTINE [Concomitant]
     Active Substance: BLEOMYCIN\DACARBAZINE\DOXORUBICIN\VINBLASTINE
     Indication: Hodgkin^s disease
     Dosage: TWO CYCLES
     Route: 065

REACTIONS (1)
  - Off label use [Unknown]
